FAERS Safety Report 7934792-1 (Version None)
Quarter: 2011Q4

REPORT INFORMATION
  Report Type: 
  Country: None (occurrence: None)
  Receive Date: 20111122
  Receipt Date: 20111121
  Transmission Date: 20120403
  Serious: Yes (Death)
  Sender: FDA-Public Use
  Company Number: TR-ABBOTT-11P-161-0875822-00

PATIENT
  Sex: Male
  Weight: 47 kg

DRUGS (2)
  1. OXYGEN [Concomitant]
     Indication: OXYGEN SUPPLEMENTATION
     Dosage: VIA VENTILATOR
  2. HUMIRA [Suspect]
     Indication: RHEUMATOID ARTHRITIS
     Route: 058
     Dates: start: 20101111, end: 20111027

REACTIONS (1)
  - RESPIRATORY ARREST [None]
